FAERS Safety Report 19899166 (Version 2)
Quarter: 2021Q4

REPORT INFORMATION
  Report Type: Report from Study
  Country: DE (occurrence: DE)
  Receive Date: 20210929
  Receipt Date: 20211001
  Transmission Date: 20220303
  Serious: Yes (Death, Other)
  Sender: FDA-Public Use
  Company Number: DE-GILEAD-2021-0550484

PATIENT
  Sex: Female
  Weight: 58 kg

DRUGS (1)
  1. SACITUZUMAB GOVITECAN [Suspect]
     Active Substance: SACITUZUMAB GOVITECAN
     Indication: Triple negative breast cancer
     Dosage: 580 MG
     Route: 042
     Dates: start: 20210830

REACTIONS (1)
  - Death [Fatal]

NARRATIVE: CASE EVENT DATE: 20210925
